FAERS Safety Report 8066458-4 (Version None)
Quarter: 2012Q1

REPORT INFORMATION
  Report Type: 
  Country: None (occurrence: None)
  Receive Date: 20120124
  Receipt Date: 20120117
  Transmission Date: 20120608
  Serious: No
  Sender: FDA-Public Use
  Company Number: US-PFIZER INC-2012014834

PATIENT
  Sex: Female
  Weight: 64.4 kg

DRUGS (4)
  1. PREMARIN [Suspect]
     Indication: VULVOVAGINAL DRYNESS
     Dosage: UNK
     Dates: start: 20080101
  2. PREMARIN [Suspect]
     Dosage: UNK. 2X/WEEK
     Dates: start: 20110801
  3. SYNTHROID [Concomitant]
     Indication: THYROID DISORDER
     Dosage: UNK
  4. PREMARIN [Suspect]
     Dosage: UNK
     Dates: start: 20080101

REACTIONS (1)
  - APPLICATION SITE PAIN [None]
